FAERS Safety Report 9602586 (Version 2)
Quarter: 2014Q3

REPORT INFORMATION
  Report Type: Spontaneous
  Country: BR (occurrence: BR)
  Receive Date: 20131007
  Receipt Date: 20140731
  Transmission Date: 20150326
  Serious: Yes (Other)
  Sender: FDA-Public Use
  Company Number: BR-PFIZER INC-2013283585

PATIENT
  Age: 71 Year
  Sex: Female

DRUGS (1)
  1. SUTENT [Suspect]
     Active Substance: SUNITINIB MALATE
     Indication: RENAL CELL CARCINOMA
     Dosage: 50 MG, CYCLE 4 PER 2
     Route: 048
     Dates: start: 20130920, end: 20140716

REACTIONS (8)
  - Blister [Unknown]
  - Nausea [Unknown]
  - Wound secretion [Unknown]
  - Leg amputation [Unknown]
  - Fatigue [Unknown]
  - Wound [Unknown]
  - Asthenia [Unknown]
  - Oral discharge [Unknown]

NARRATIVE: CASE EVENT DATE: 2013
